FAERS Safety Report 7371994-X (Version None)
Quarter: 2011Q1

REPORT INFORMATION
  Report Type: 
  Country: None (occurrence: None)
  Receive Date: 20110324
  Receipt Date: 20110316
  Transmission Date: 20110831
  Serious: Yes (Death, Hospitalization)
  Sender: FDA-Public Use
  Company Number: PHHY2011IT08621

PATIENT
  Sex: Male

DRUGS (1)
  1. CERTICAN [Suspect]
     Dosage: 1.5 MG, QD
     Route: 048
     Dates: start: 20090516

REACTIONS (2)
  - BRONCHOPNEUMONIA [None]
  - CARDIOPULMONARY FAILURE [None]
